FAERS Safety Report 10470994 (Version 5)
Quarter: 2015Q3

REPORT INFORMATION
  Report Type: Spontaneous
  Country: US (occurrence: US)
  Receive Date: 20140923
  Receipt Date: 20150826
  Transmission Date: 20151125
  Serious: Yes (Death, Hospitalization, Other)
  Sender: FDA-Public Use
  Company Number: US-009507513-1409USA010760

PATIENT
  Sex: Female
  Weight: 83.9 kg

DRUGS (2)
  1. JANUVIA [Suspect]
     Active Substance: SITAGLIPTIN PHOSPHATE
     Indication: TYPE 2 DIABETES MELLITUS
     Dosage: 100 MG, QD
     Route: 048
     Dates: start: 20091006, end: 20121214
  2. JANUVIA [Suspect]
     Active Substance: SITAGLIPTIN PHOSPHATE
     Dosage: 50 MG, QD
     Route: 048
     Dates: start: 20090316, end: 20130319

REACTIONS (57)
  - Pancreatic carcinoma metastatic [Fatal]
  - Breast cancer [Unknown]
  - Anxiety [Unknown]
  - Asthma [Unknown]
  - Dermatitis acneiform [Recovered/Resolved]
  - Erosive duodenitis [Unknown]
  - Carotid arteriosclerosis [Unknown]
  - Atrial fibrillation [Unknown]
  - Pancreatic carcinoma recurrent [Unknown]
  - Diabetes mellitus inadequate control [Unknown]
  - Leukocytosis [Recovering/Resolving]
  - Gastritis haemorrhagic [Unknown]
  - Haemorrhagic anaemia [Unknown]
  - Normochromic normocytic anaemia [Unknown]
  - Urinary tract infection [Unknown]
  - Pneumonia [Unknown]
  - Drug intolerance [Unknown]
  - Vitamin D deficiency [Unknown]
  - Eye disorder [Unknown]
  - Pelvic fluid collection [Unknown]
  - Gallbladder disorder [Unknown]
  - Gastrointestinal wall thickening [Unknown]
  - Pancreatic stent placement [Unknown]
  - Stent placement [Unknown]
  - Wrong technique in product usage process [Unknown]
  - Gastritis erosive [Unknown]
  - Cerebral atrophy [Unknown]
  - Rhinorrhoea [Unknown]
  - Asthenia [Unknown]
  - Gastrointestinal telangiectasia [Unknown]
  - Pancreatitis [Unknown]
  - Iridocyclitis [Unknown]
  - Hypertension [Unknown]
  - Endometrial thickening [Unknown]
  - Hypothyroidism [Unknown]
  - Vertebroplasty [Unknown]
  - Colitis microscopic [Unknown]
  - Oedema [Unknown]
  - Duodenal ulcer [Unknown]
  - Cardio-respiratory arrest [Fatal]
  - Anaemia [Unknown]
  - Glaucoma [Unknown]
  - Muscular weakness [Unknown]
  - Gastrointestinal haemorrhage [Unknown]
  - Sepsis [Unknown]
  - Hyperlipidaemia [Unknown]
  - Breast conserving surgery [Unknown]
  - Haemorrhoid operation [Unknown]
  - Hiatus hernia [Unknown]
  - Oesophagitis [Unknown]
  - Pancytopenia [Unknown]
  - Otitis externa [Unknown]
  - Foot operation [Unknown]
  - Bile duct stent insertion [Unknown]
  - Radiotherapy [Unknown]
  - Chronic obstructive pulmonary disease [Not Recovered/Not Resolved]
  - Diverticulum [Unknown]

NARRATIVE: CASE EVENT DATE: 200905
